FAERS Safety Report 8081706 (Version 3)
Quarter: 2013Q2

REPORT INFORMATION
  Report Type: Spontaneous
  Country: DE (occurrence: DE)
  Receive Date: 20110809
  Receipt Date: 20130423
  Transmission Date: 20140414
  Serious: Yes (Other)
  Sender: FDA-Public Use
  Company Number: DE-UCBSA-037989

PATIENT
  Sex: Female

DRUGS (1)
  1. KEPPRA [Suspect]
     Indication: CONVULSION
     Dosage: TREATED WITH KEPPRA FOR 2.5 YEARS, 1500 MG

REACTIONS (2)
  - Hyponatraemia [Unknown]
  - Epilepsy [Unknown]
